FAERS Safety Report 9756442 (Version 1)
Quarter: 2013Q4

REPORT INFORMATION
  Report Type: Spontaneous
  Country: US (occurrence: US)
  Receive Date: 20131213
  Receipt Date: 20131213
  Transmission Date: 20140711
  Serious: No
  Sender: FDA-Public Use
  Company Number: US-GLAXOSMITHKLINE-A1041322A

PATIENT
  Age: 64 Year
  Sex: Male

DRUGS (2)
  1. NICODERM CQ 21MG [Suspect]
     Indication: EX-TOBACCO USER
     Dates: start: 20130901
  2. NICORETTE 4MG GUM [Suspect]
     Indication: PRODUCT USED FOR UNKNOWN INDICATION
     Dosage: 4MG UNKNOWN
     Route: 065

REACTIONS (5)
  - Application site pruritus [Recovered/Resolved]
  - Nicotine dependence [Unknown]
  - Drug ineffective [Unknown]
  - Drug administration error [Unknown]
  - Throat irritation [Recovered/Resolved]
